FAERS Safety Report 22083518 (Version 1)
Quarter: 2023Q1

REPORT INFORMATION
  Report Type: Report from Study
  Country: US (occurrence: US)
  Receive Date: 20230310
  Receipt Date: 20230310
  Transmission Date: 20230418
  Serious: Yes (Death, Hospitalization)
  Sender: FDA-Public Use
  Company Number: US-MYLANLABS-2023M1024359

PATIENT
  Age: 32 Year
  Sex: Female

DRUGS (1)
  1. WARFARIN [Suspect]
     Active Substance: WARFARIN
     Indication: Product used for unknown indication
     Dosage: UNK
     Route: 065

REACTIONS (7)
  - Toxicity to various agents [Fatal]
  - Anion gap increased [Fatal]
  - Gastrointestinal haemorrhage [Fatal]
  - Haemolysis [Fatal]
  - Coma [Fatal]
  - Coagulopathy [Fatal]
  - Cardiac arrest [Fatal]
